FAERS Safety Report 5648355-4 (Version None)
Quarter: 2008Q1

REPORT INFORMATION
  Report Type: 
  Country: None (occurrence: None)
  Receive Date: 20080303
  Receipt Date: 20080303
  Transmission Date: 20080703
  Serious: Yes (Life-Threatening)
  Sender: FDA-Public Use
  Company Number: None

PATIENT
  Age: 39 Year
  Sex: Female
  Weight: 63.5036 kg

DRUGS (1)
  1. PROAIR HFA [Suspect]
     Indication: ASTHMA
     Dosage: 2 PUFFS BY MOUTH AS NEEDED INHAL
     Route: 055
     Dates: start: 20080301, end: 20080301

REACTIONS (8)
  - CYANOSIS [None]
  - DRUG HYPERSENSITIVITY [None]
  - DRUG INEFFECTIVE [None]
  - PHARMACEUTICAL PRODUCT COMPLAINT [None]
  - POOR PERIPHERAL CIRCULATION [None]
  - PULMONARY OEDEMA [None]
  - RHINORRHOEA [None]
  - SINUSITIS NONINFECTIVE [None]
